FAERS Safety Report 8929300 (Version 1)
Quarter: 2012Q4

REPORT INFORMATION
  Report Type: Spontaneous
  Country: US (occurrence: None)
  Receive Date: 20121126
  Receipt Date: 20121126
  Transmission Date: 20130627
  Serious: Yes (Disabling)
  Sender: FDA-Public Use
  Company Number: None

PATIENT
  Sex: Female
  Weight: 86.18 kg

DRUGS (3)
  1. OXCARBAZEPINE [Suspect]
     Indication: BIPOLAR DISORDER
  2. OXCARBAZEPINE [Suspect]
     Indication: MOOD DISORDER NOS
  3. ABILIFY [Suspect]

REACTIONS (6)
  - Hypertension [None]
  - Headache [None]
  - Rash [None]
  - Dyspepsia [None]
  - Toxic shock syndrome [None]
  - Visual acuity reduced [None]
